FAERS Safety Report 21246414 (Version 1)
Quarter: 2022Q3

REPORT INFORMATION
  Report Type: Spontaneous
  Country: US (occurrence: US)
  Receive Date: 20220824
  Receipt Date: 20220824
  Transmission Date: 20221027
  Serious: No
  Sender: FDA-Public Use
  Company Number: US-JNJFOC-20220829201

PATIENT
  Sex: Female

DRUGS (3)
  1. SPRAVATO [Suspect]
     Active Substance: ESKETAMINE
     Indication: Depression
     Dosage: ^56 MG, 9 TOTAL DOSES^
     Dates: start: 20220615, end: 20220713
  2. SPRAVATO [Suspect]
     Active Substance: ESKETAMINE
     Dosage: ^84 MG, 4 TOTAL DOSES^
     Dates: start: 20220720, end: 20220810
  3. KETAMINE [Concomitant]
     Active Substance: KETAMINE
     Route: 065

REACTIONS (6)
  - Pain [Unknown]
  - Off label use [Unknown]
  - Crying [Unknown]
  - Visual impairment [Unknown]
  - Anxiety [Unknown]
  - Nausea [Unknown]

NARRATIVE: CASE EVENT DATE: 20220101
